FAERS Safety Report 7788559-8 (Version None)
Quarter: 2011Q3

REPORT INFORMATION
  Report Type: 
  Country: None (occurrence: None)
  Receive Date: 20110930
  Receipt Date: 20110920
  Transmission Date: 20111222
  Serious: Yes (Other)
  Sender: FDA-Public Use
  Company Number: PK-JNJFOC-20110909649

PATIENT
  Age: 62 Year
  Sex: Male

DRUGS (16)
  1. RISPERIDONE [Suspect]
     Route: 065
  2. RISPERIDONE [Suspect]
     Route: 065
  3. RISPERIDONE [Suspect]
     Indication: INSOMNIA
     Route: 065
  4. SERTRALINE HYDROCHLORIDE [Suspect]
     Route: 065
  5. SERTRALINE HYDROCHLORIDE [Suspect]
     Route: 065
  6. RISPERIDONE [Suspect]
     Route: 065
  7. RISPERIDONE [Suspect]
     Route: 065
  8. RISPERIDONE [Suspect]
     Route: 065
  9. RISPERIDONE [Suspect]
     Route: 065
  10. SERTRALINE HYDROCHLORIDE [Suspect]
     Indication: DEPRESSION
     Route: 065
  11. RISPERIDONE [Suspect]
     Indication: DEPRESSION
     Route: 065
  12. RISPERIDONE [Suspect]
     Route: 065
  13. RISPERIDONE [Suspect]
     Route: 065
  14. SERTRALINE HYDROCHLORIDE [Suspect]
     Route: 065
  15. RISPERIDONE [Suspect]
     Indication: HYPOMANIA
     Route: 065
  16. RISPERIDONE [Suspect]
     Route: 065

REACTIONS (4)
  - DRUG INEFFECTIVE [None]
  - EXTRAPYRAMIDAL DISORDER [None]
  - BRONCHIAL HYPERREACTIVITY [None]
  - RESPIRATORY DYSKINESIA [None]
